FAERS Safety Report 24134994 (Version 4)
Quarter: 2024Q4

REPORT INFORMATION
  Report Type: Spontaneous
  Country: US (occurrence: US)
  Receive Date: 20240725
  Receipt Date: 20241107
  Transmission Date: 20250114
  Serious: Yes (Other)
  Sender: NOVO NORDISK
  Company Number: US-NOVOPROD-1258951

PATIENT
  Age: 48 Year
  Sex: Female

DRUGS (2)
  1. WEGOVY [Suspect]
     Active Substance: SEMAGLUTIDE
     Dosage: 0.5 MG, SINGLE
     Route: 058
     Dates: start: 20240709, end: 20240709
  2. WEGOVY [Suspect]
     Active Substance: SEMAGLUTIDE
     Indication: Weight control
     Dosage: 0.25 MG, QW
     Route: 058
     Dates: start: 20240611, end: 20240708

REACTIONS (13)
  - Palpitations [Recovered/Resolved]
  - Swollen tongue [Recovered/Resolved]
  - Paraesthesia oral [Recovered/Resolved]
  - Oral discomfort [Unknown]
  - Chest pain [Unknown]
  - Mouth swelling [Unknown]
  - Paraesthesia oral [Unknown]
  - Blood pressure increased [Unknown]
  - Nausea [Recovered/Resolved]
  - Headache [Recovered/Resolved]
  - Vomiting [Recovered/Resolved]
  - Diarrhoea [Recovered/Resolved]
  - Decreased appetite [Not Recovered/Not Resolved]

NARRATIVE: CASE EVENT DATE: 20240601
